FAERS Safety Report 22984715 (Version 2)
Quarter: 2023Q4

REPORT INFORMATION
  Report Type: Report from Study
  Country: BR (occurrence: BR)
  Receive Date: 20230926
  Receipt Date: 20231011
  Transmission Date: 20240110
  Serious: Yes (Other)
  Sender: FDA-Public Use
  Company Number: BR-AMGEN-BRASL2023167343

PATIENT
  Age: 74 Year
  Sex: Male

DRUGS (6)
  1. VECTIBIX [Suspect]
     Active Substance: PANITUMUMAB
     Indication: Gastrointestinal disorder
     Dosage: UNK, EVERY 15 DAYS
     Route: 042
     Dates: start: 20221212
  2. VECTIBIX [Suspect]
     Active Substance: PANITUMUMAB
     Indication: Off label use
  3. METFORMIN HYDROCHLORIDE [Concomitant]
     Active Substance: METFORMIN HYDROCHLORIDE
     Indication: Product used for unknown indication
     Dosage: 500 MILLIGRAM
     Route: 065
  4. SIMVASTATIN [Concomitant]
     Active Substance: SIMVASTATIN
     Indication: Product used for unknown indication
     Dosage: UNK
     Route: 065
  5. TADALAFIL [Concomitant]
     Active Substance: TADALAFIL
     Indication: Product used for unknown indication
     Dosage: UNK
     Route: 065
  6. Daflon [Concomitant]
     Indication: Product used for unknown indication
     Dosage: UNK
     Route: 065

REACTIONS (12)
  - Haemorrhage [Recovering/Resolving]
  - Limb injury [Recovering/Resolving]
  - Haemorrhoids [Recovering/Resolving]
  - Loss of personal independence in daily activities [Recovering/Resolving]
  - Pustule [Recovering/Resolving]
  - Skin irritation [Recovering/Resolving]
  - Dermatitis [Recovering/Resolving]
  - Rash [Recovering/Resolving]
  - Dry skin [Recovering/Resolving]
  - Aphthous ulcer [Recovering/Resolving]
  - Erythema [Recovering/Resolving]
  - Off label use [Unknown]
